FAERS Safety Report 7501546-X (Version None)
Quarter: 2011Q2

REPORT INFORMATION
  Report Type: 
  Country: None (occurrence: None)
  Receive Date: 20110524
  Receipt Date: 20110517
  Transmission Date: 20111010
  Serious: Yes (Hospitalization)
  Sender: FDA-Public Use
  Company Number: FR-TYCO HEALTHCARE/MALLINCKRODT-T201100976

PATIENT
  Age: 71 Year
  Sex: Male

DRUGS (7)
  1. VASTEN                             /00880402/ [Concomitant]
  2. ACUITEL                            /00810601/ [Concomitant]
  3. ACTOS [Concomitant]
  4. BISOPROLOL FUMARATE [Concomitant]
  5. PREVISCAN                          /00789001/ [Concomitant]
  6. THALLOUS CHLORIDE (TI 201) INJECTION [Suspect]
     Indication: CARDIAC STRESS TEST
     Dosage: 111 MBQ, SINGLE
     Route: 065
  7. LASIX [Concomitant]

REACTIONS (2)
  - ERYTHEMA [None]
  - BURNING SENSATION [None]
